FAERS Safety Report 9619417 (Version 2)
Quarter: 2014Q1

REPORT INFORMATION
  Report Type: Spontaneous
  Country: GB (occurrence: GB)
  Receive Date: 20131014
  Receipt Date: 20140127
  Transmission Date: 20141002
  Serious: Yes (Disabling)
  Sender: FDA-Public Use
  Company Number: PHHY2013GB109859

PATIENT
  Age: 34 Year
  Sex: Female
  Weight: 92.7 kg

DRUGS (7)
  1. LAMOTRIGINE [Suspect]
     Indication: BIPOLAR II DISORDER
     Dosage: 50 MG, QD
     Route: 048
     Dates: start: 201307
  2. LAMOTRIGINE [Suspect]
     Dosage: 100 MG, QD
     Route: 048
     Dates: start: 2013
  3. LAMOTRIGINE [Suspect]
     Dosage: 150 MG, QD
     Route: 048
     Dates: start: 2013
  4. LAMOTRIGINE [Suspect]
     Dosage: 75 MG, QD
     Route: 048
     Dates: start: 2013
  5. LAMOTRIGINE [Suspect]
     Dosage: 50 MG, QD
     Route: 048
     Dates: start: 2013
  6. LAMOTRIGINE [Suspect]
     Dosage: 25 MG, QD
     Route: 048
     Dates: start: 2013
  7. OMEGA 3 [Concomitant]
     Dosage: 400 MG, UNK
     Dates: end: 201308

REACTIONS (14)
  - Mood swings [Not Recovered/Not Resolved]
  - Aphasia [Recovered/Resolved]
  - Depressed mood [Not Recovered/Not Resolved]
  - Tearfulness [Not Recovered/Not Resolved]
  - Intentional self-injury [Recovered/Resolved]
  - Lethargy [Not Recovered/Not Resolved]
  - Abnormal behaviour [Unknown]
  - Feeling abnormal [Unknown]
  - Anger [Recovered/Resolved]
  - Crying [Not Recovered/Not Resolved]
  - Energy increased [Unknown]
  - Headache [Not Recovered/Not Resolved]
  - Suicidal ideation [Recovered/Resolved]
  - Drug ineffective [Unknown]
